FAERS Safety Report 4740050-9 (Version None)
Quarter: 2005Q3

REPORT INFORMATION
  Report Type: 
  Country: None (occurrence: None)
  Receive Date: 20050810
  Receipt Date: 20040227
  Transmission Date: 20060218
  Serious: No
  Sender: FDA-Public Use
  Company Number: US-GLAXOSMITHKLINE-A0502609A

PATIENT
  Sex: Female

DRUGS (4)
  1. PAXIL [Suspect]
     Indication: ANXIETY
     Route: 048
     Dates: start: 20000701, end: 20010401
  2. SERZONE [Suspect]
     Indication: ANXIETY
     Route: 048
     Dates: start: 20010401, end: 20010401
  3. LO/OVRAL [Concomitant]
     Indication: DRUG USE FOR UNKNOWN INDICATION
     Route: 048
  4. PRILOSEC [Concomitant]
     Dosage: 20MG PER DAY
     Route: 048

REACTIONS (20)
  - ANXIETY [None]
  - ASTHENIA [None]
  - ASTHENOPIA [None]
  - CRYING [None]
  - DECREASED APPETITE [None]
  - DRUG WITHDRAWAL SYNDROME [None]
  - DRY EYE [None]
  - DYSGEUSIA [None]
  - EYE MOVEMENT DISORDER [None]
  - EYE PAIN [None]
  - FEELING ABNORMAL [None]
  - HEADACHE [None]
  - HYPERREFLEXIA [None]
  - LETHARGY [None]
  - MALAISE [None]
  - NAUSEA [None]
  - PAROSMIA [None]
  - SENSORY DISTURBANCE [None]
  - STRESS [None]
  - VISION BLURRED [None]
